APPROVED DRUG PRODUCT: HYDROCODONE BITARTRATE AND ACETAMINOPHEN
Active Ingredient: ACETAMINOPHEN; HYDROCODONE BITARTRATE
Strength: 750MG;7.5MG
Dosage Form/Route: TABLET;ORAL
Application: A040084 | Product #001
Applicant: MALLINCKRODT CHEMICAL INC
Approved: Jun 1, 1995 | RLD: No | RS: No | Type: DISCN